FAERS Safety Report 6064300-4 (Version None)
Quarter: 2009Q1

REPORT INFORMATION
  Report Type: 
  Country: None (occurrence: None)
  Receive Date: 20090204
  Receipt Date: 20090123
  Transmission Date: 20090719
  Serious: No
  Sender: FDA-Public Use
  Company Number: BR-EISAI MEDIAL RESEARCH-E3810-02512-SPO-BR

PATIENT
  Age: 31 Year
  Sex: Male
  Weight: 74 kg

DRUGS (2)
  1. RABEPRAZOLE SODIUM [Suspect]
     Indication: OESOPHAGITIS
     Route: 048
     Dates: start: 20081227
  2. RABEPRAZOLE SODIUM [Suspect]
     Indication: REFLUX GASTRITIS

REACTIONS (1)
  - ORAL HERPES [None]
